FAERS Safety Report 7235977-2 (Version None)
Quarter: 2011Q1

REPORT INFORMATION
  Report Type: 
  Country: None (occurrence: None)
  Receive Date: 20110120
  Receipt Date: 20110114
  Transmission Date: 20110831
  Serious: Yes (Hospitalization, Disabling)
  Sender: FDA-Public Use
  Company Number: B0693724A

PATIENT
  Sex: Female

DRUGS (12)
  1. PREVISCAN [Suspect]
     Indication: PRODUCT USED FOR UNKNOWN INDICATION
     Dosage: 20MG SEE DOSAGE TEXT
     Route: 048
     Dates: start: 19980101
  2. MOPRAL [Concomitant]
     Indication: PRODUCT USED FOR UNKNOWN INDICATION
     Dosage: 40MG PER DAY
     Route: 048
  3. CLAMOXYL [Suspect]
     Indication: ENTEROCOCCAL SEPSIS
     Dosage: 1G THREE TIMES PER DAY
     Route: 048
     Dates: start: 20101021, end: 20101024
  4. NOCTRAN [Concomitant]
     Indication: PRODUCT USED FOR UNKNOWN INDICATION
     Dosage: 10MG PER DAY
     Route: 048
  5. DURAGESIC-100 [Concomitant]
     Indication: ABDOMINAL PAIN UPPER
     Route: 062
     Dates: start: 20100901
  6. GAVISCON [Concomitant]
     Indication: PRODUCT USED FOR UNKNOWN INDICATION
     Dosage: 1SAC THREE TIMES PER DAY
     Route: 048
  7. IZILOX [Suspect]
     Indication: ENTEROCOCCAL SEPSIS
     Dosage: 400MG PER DAY
     Route: 048
     Dates: start: 20101021, end: 20101024
  8. AMOXICILLIN [Concomitant]
     Indication: ENTEROCOCCAL SEPSIS
     Route: 048
     Dates: start: 20101025
  9. FORLAX [Concomitant]
     Indication: PRODUCT USED FOR UNKNOWN INDICATION
     Dosage: 1SAC PER DAY
     Route: 048
  10. LAROXYL [Concomitant]
     Indication: PRODUCT USED FOR UNKNOWN INDICATION
     Dosage: 40MG AT NIGHT
     Route: 048
  11. LASIX [Concomitant]
     Indication: PRODUCT USED FOR UNKNOWN INDICATION
     Dosage: 40MG TWICE PER DAY
     Route: 048
  12. DIFFU K [Concomitant]
     Indication: PRODUCT USED FOR UNKNOWN INDICATION
     Dosage: 1CAP TWICE PER DAY
     Route: 048

REACTIONS (4)
  - ANAEMIA [None]
  - MELAENA [None]
  - ABDOMINAL PAIN UPPER [None]
  - VOMITING [None]
